FAERS Safety Report 7772330-7 (Version None)
Quarter: 2011Q3

REPORT INFORMATION
  Report Type: 
  Country: None (occurrence: None)
  Receive Date: 20110922
  Receipt Date: 20110718
  Transmission Date: 20111222
  Serious: No
  Sender: FDA-Public Use
  Company Number: US-ASTRAZENECA-2011SE43021

PATIENT
  Age: 12058 Day
  Sex: Male
  Weight: 126.6 kg

DRUGS (6)
  1. DARVOCET [Concomitant]
     Dates: start: 20060101
  2. CITALOPRAM HYDROBROMIDE [Concomitant]
     Route: 048
     Dates: start: 20050929
  3. LORAZEPAM [Concomitant]
     Route: 048
     Dates: start: 20050529
  4. VICODIN [Concomitant]
     Dosage: 5/500 EVERY 6 HOURS
     Dates: start: 20060101
  5. NAPROXEN (ALEVE) [Concomitant]
     Dosage: TWICE A DAY
     Dates: start: 20060710
  6. SEROQUEL [Suspect]
     Dosage: 25 TO 300 MG
     Route: 048
     Dates: start: 20051010

REACTIONS (7)
  - DIABETES MELLITUS [None]
  - RECTAL HAEMORRHAGE [None]
  - SPLENOMEGALY [None]
  - PAIN IN EXTREMITY [None]
  - ALANINE AMINOTRANSFERASE INCREASED [None]
  - HEPATOMEGALY [None]
  - OBESITY [None]
